FAERS Safety Report 20303302 (Version 1)
Quarter: 2022Q1

REPORT INFORMATION
  Report Type: Spontaneous
  Country: DE (occurrence: DE)
  Receive Date: 20220106
  Receipt Date: 20220106
  Transmission Date: 20220423
  Serious: Yes (Hospitalization)
  Sender: FDA-Public Use
  Company Number: DE-ADRED-05259-02

PATIENT
  Age: 51 Year
  Sex: Male
  Weight: 112 kg

DRUGS (17)
  1. SIMVASTATIN [Suspect]
     Active Substance: SIMVASTATIN
     Indication: Product used for unknown indication
     Dosage: 40 MG, 0-0-1-0, TABLET
     Route: 048
  2. HYDROCHLOROTHIAZIDE\RAMIPRIL [Suspect]
     Active Substance: HYDROCHLOROTHIAZIDE\RAMIPRIL
     Indication: Product used for unknown indication
     Dosage: 25/5 MG, 1-0-0-0, TABLET
     Route: 048
  3. MIRTAZAPINE [Suspect]
     Active Substance: MIRTAZAPINE
     Indication: Product used for unknown indication
     Dosage: 15 MG, 0-0-0-0.5, TABLET
     Route: 048
  4. MELATONIN [Suspect]
     Active Substance: MELATONIN
     Indication: Product used for unknown indication
     Dosage: UNK, SELF-MEDICATION
     Route: 065
  5. PROMETHAZINE [Suspect]
     Active Substance: PROMETHAZINE HYDROCHLORIDE
     Indication: Product used for unknown indication
     Dosage: 20 MG / ML, IF NECESSARY, DROPS
     Route: 048
  6. ENOXAPARIN [Concomitant]
     Active Substance: ENOXAPARIN
     Indication: Product used for unknown indication
     Dosage: 40 MG / 0.4ML, 0-0-1-0, PRE-FILLED SYRINGES
     Route: 058
  7. METOPROLOL [Concomitant]
     Active Substance: METOPROLOL
     Indication: Product used for unknown indication
     Dosage: 95 MG, 1-0-1-0, SUSTAINED-RELEASE TABLETS
     Route: 048
  8. ASPIRIN [Concomitant]
     Active Substance: ASPIRIN
     Indication: Product used for unknown indication
     Dosage: 100 MG, 0-1-0-0, TABLET
     Route: 048
  9. IBUPROFEN [Concomitant]
     Active Substance: IBUPROFEN
     Indication: Product used for unknown indication
     Dosage: 800 MG,REQUIREMENT,TABLET
     Route: 048
  10. LORAZEPAM [Concomitant]
     Active Substance: LORAZEPAM
     Indication: Product used for unknown indication
     Dosage: 1 MG, 1-1-1-0, ORODISPERSIBLE TABLETS
     Route: 060
  11. LERCANIDIPINE [Concomitant]
     Active Substance: LERCANIDIPINE
     Indication: Product used for unknown indication
     Dosage: 10 MG, 1-0-1-0, TABLET
     Route: 048
  12. Victoza 6mg/ml Injektionslosung in einem Fertigpen [Concomitant]
     Indication: Product used for unknown indication
     Dosage: 6 MG / ML, 0-0-0.6-0, PRE-FILLED SYRINGES
     Route: 058
  13. RAMIPRIL [Concomitant]
     Active Substance: RAMIPRIL
     Indication: Product used for unknown indication
     Dosage: 5 MG, 1-0-1-0, TABLET
     Route: 048
  14. Mariendistel [Concomitant]
     Indication: Product used for unknown indication
     Dosage: SELF-MEDICATION
     Route: 065
  15. METFORMIN [Concomitant]
     Active Substance: METFORMIN HYDROCHLORIDE
     Indication: Product used for unknown indication
     Dosage: 1000 MG, 1-0-1-0, TABLET
     Route: 048
  16. NITROGLYCERIN [Concomitant]
     Active Substance: NITROGLYCERIN
     Indication: Product used for unknown indication
     Dosage: 0.4 MG / STROKE, IF NECESSARY, SOLUTION
     Route: 060
  17. DIHYDRALAZINE SULFATE [Concomitant]
     Active Substance: DIHYDRALAZINE SULFATE
     Indication: Product used for unknown indication
     Dosage: 25 MG, 1-0-1-0, TABLET
     Route: 048

REACTIONS (6)
  - Cholelithiasis [Unknown]
  - Contraindicated product administered [Unknown]
  - Labelled drug-drug interaction medication error [Unknown]
  - Abdominal pain upper [Unknown]
  - Gallbladder enlargement [Unknown]
  - Product monitoring error [Unknown]
